FAERS Safety Report 7086644-X (Version None)
Quarter: 2010Q4

REPORT INFORMATION
  Report Type: 
  Country: None (occurrence: None)
  Receive Date: 20101105
  Receipt Date: 20101006
  Transmission Date: 20110411
  Serious: No
  Sender: FDA-Public Use
  Company Number: US-BAYER-201026541NA

PATIENT
  Age: 50 Year
  Sex: Female

DRUGS (1)
  1. EOVIST [Suspect]
     Dosage: AS USED: 7 ML
     Dates: start: 20100608, end: 20100608

REACTIONS (1)
  - RESPIRATION ABNORMAL [None]
